FAERS Safety Report 19608623 (Version 2)
Quarter: 2021Q3

REPORT INFORMATION
  Report Type: Spontaneous
  Country: US (occurrence: US)
  Receive Date: 20210726
  Receipt Date: 20210924
  Transmission Date: 20211014
  Serious: Yes (Hospitalization)
  Sender: FDA-Public Use
  Company Number: US-GLAXOSMITHKLINE-US2021157150

PATIENT
  Age: 63 Year
  Sex: Male

DRUGS (1)
  1. ANORO ELLIPTA [Suspect]
     Active Substance: UMECLIDINIUM BROMIDE\VILANTEROL TRIFENATATE
     Indication: CHRONIC OBSTRUCTIVE PULMONARY DISEASE
     Dosage: 62.5?25 USE ONE INHALATION BY MOUTH ONCE DAILY
     Route: 055
     Dates: start: 2019

REACTIONS (1)
  - Vascular graft [Not Recovered/Not Resolved]

NARRATIVE: CASE EVENT DATE: 20210628
